FAERS Safety Report 16847823 (Version 1)
Quarter: 2019Q3

REPORT INFORMATION
  Report Type: Spontaneous
  Country: US (occurrence: US)
  Receive Date: 20190924
  Receipt Date: 20190924
  Transmission Date: 20191005
  Serious: No
  Sender: FDA-Public Use
  Company Number: US-ACORDA-ACO_160240_2019

PATIENT
  Sex: Male
  Weight: 92.97 kg

DRUGS (1)
  1. INBRIJA [Suspect]
     Active Substance: LEVODOPA
     Indication: PARKINSON^S DISEASE
     Dosage: 84 MILLIGRAM, PRN, UP TO 5 TIMES PER DAY
     Dates: start: 201906, end: 20190725

REACTIONS (7)
  - Device issue [Unknown]
  - Cough [Unknown]
  - Drug ineffective [Unknown]
  - Choking sensation [Unknown]
  - Foreign body in respiratory tract [Unknown]
  - Throat irritation [Unknown]
  - Dyspnoea [Unknown]
